FAERS Safety Report 5450264-0 (Version None)
Quarter: 2007Q3

REPORT INFORMATION
  Report Type: 
  Country: None (occurrence: None)
  Receive Date: 20070912
  Receipt Date: 20070905
  Transmission Date: 20080115
  Serious: Yes (Other)
  Sender: FDA-Public Use
  Company Number: US-PFIZER INC-2007074350

PATIENT
  Sex: Male
  Weight: 131.36 kg

DRUGS (5)
  1. LIPITOR [Suspect]
     Indication: BLOOD CHOLESTEROL
     Dates: start: 20060901, end: 20070701
  2. POTASSIUM CHLORIDE [Concomitant]
  3. ATENOLOL [Concomitant]
  4. ALPRAZOLAM [Concomitant]
  5. ZETIA [Concomitant]

REACTIONS (2)
  - ABASIA [None]
  - MYALGIA [None]
